FAERS Safety Report 5468351-X (Version None)
Quarter: 2007Q3

REPORT INFORMATION
  Report Type: 
  Country: None (occurrence: None)
  Receive Date: 20070924
  Receipt Date: 20070906
  Transmission Date: 20080115
  Serious: Yes (Death, Life-Threatening)
  Sender: FDA-Public Use
  Company Number: S07-TUN-05059-01

PATIENT
  Age: 52 Year
  Sex: Female
  Weight: 90 kg

DRUGS (5)
  1. ESCITALOPRAM OXALATE [Suspect]
     Dates: start: 20070626, end: 20070801
  2. LEVOTHYROXIN (LEVOTHYROXINE SODIUM) [Concomitant]
  3. INSULIN [Concomitant]
  4. METFORMIN HCL [Concomitant]
  5. GLICLAZIDE [Concomitant]

REACTIONS (2)
  - DIABETES MELLITUS [None]
  - RENAL FAILURE [None]
